FAERS Safety Report 6692111-5 (Version None)
Quarter: 2010Q2

REPORT INFORMATION
  Report Type: 
  Country: None (occurrence: None)
  Receive Date: 20100422
  Receipt Date: 20090629
  Transmission Date: 20101027
  Serious: No
  Sender: FDA-Public Use
  Company Number: US-ASTRAZENECA-2009UW18166

PATIENT
  Age: 73 Year
  Sex: Female
  Weight: 61.2 kg

DRUGS (2)
  1. TOPROL-XL [Suspect]
     Route: 048
     Dates: start: 20090627, end: 20090628
  2. THYROID PILL [Concomitant]

REACTIONS (5)
  - DIZZINESS [None]
  - FEELING HOT [None]
  - ILL-DEFINED DISORDER [None]
  - MALAISE [None]
  - MOVEMENT DISORDER [None]
